FAERS Safety Report 13496744 (Version 1)
Quarter: 2017Q2

REPORT INFORMATION
  Report Type: Report from Study
  Country: US (occurrence: US)
  Receive Date: 20170428
  Receipt Date: 20170428
  Transmission Date: 20170830
  Serious: Yes (Other)
  Sender: FDA-Public Use
  Company Number: US-SAOL THERAPEUTICS-2017SAO00681

PATIENT
  Sex: Female

DRUGS (8)
  1. BUPIVACAINE. [Suspect]
     Active Substance: BUPIVACAINE
     Dosage: 16.582 MG, \DAY
     Route: 037
     Dates: start: 20160519
  2. DILAUDID [Suspect]
     Active Substance: HYDROMORPHONE HYDROCHLORIDE
     Dosage: 2.211 MG, \DAY
     Route: 037
     Dates: start: 20160519
  3. BUPIVACAINE. [Suspect]
     Active Substance: BUPIVACAINE
     Dosage: 28.292 MG, \DAY
     Route: 037
     Dates: start: 20160519
  4. CLONIDINE. [Suspect]
     Active Substance: CLONIDINE
     Dosage: 138.18 ?G, \DAY
     Route: 037
     Dates: start: 20160519
  5. COMPOUNDED BACLOFEN [Suspect]
     Active Substance: BACLOFEN
     Dosage: 235.77 ?G, \DAY
     Route: 037
     Dates: start: 20160519
  6. DILAUDID [Suspect]
     Active Substance: HYDROMORPHONE HYDROCHLORIDE
     Dosage: 3.772 MG, \DAY
     Route: 037
     Dates: start: 20160519
  7. COMPOUNDED BACLOFEN [Suspect]
     Active Substance: BACLOFEN
     Dosage: 138.18 ?G, \DAY
     Route: 037
     Dates: start: 20160519
  8. CLONIDINE. [Suspect]
     Active Substance: CLONIDINE
     Dosage: 235.77 ?G, \DAY
     Route: 037
     Dates: start: 20160519

REACTIONS (7)
  - Burning sensation [Unknown]
  - Treatment noncompliance [Unknown]
  - Off label use [Unknown]
  - Drug dose omission [Recovered/Resolved]
  - Pain [Unknown]
  - Drug withdrawal syndrome [Unknown]
  - Device alarm issue [Unknown]

NARRATIVE: CASE EVENT DATE: 20160719
